FAERS Safety Report 5197370-6 (Version None)
Quarter: 2006Q4

REPORT INFORMATION
  Report Type: 
  Country: None (occurrence: None)
  Receive Date: 20060929
  Receipt Date: 20051216
  Transmission Date: 20070319
  Serious: Yes (Death)
  Sender: FDA-Public Use
  Company Number: FLX20050017

PATIENT
  Age: 19 Year
  Sex: Male

DRUGS (2)
  1. FLUOXETINE HCL [Suspect]
     Indication: MENTAL DISORDER
     Dosage: PO
     Route: 048
     Dates: start: 20000101, end: 20020701
  2. PROZAC [Suspect]
     Indication: MENTAL DISORDER
     Dosage: PO
     Route: 048
     Dates: start: 20000101, end: 20020701

REACTIONS (2)
  - COMPLETED SUICIDE [None]
  - CONDITION AGGRAVATED [None]
